FAERS Safety Report 5663028-X (Version None)
Quarter: 2008Q1

REPORT INFORMATION
  Report Type: 
  Country: None (occurrence: None)
  Receive Date: 20080313
  Receipt Date: 20080307
  Transmission Date: 20080703
  Serious: Yes (Other)
  Sender: FDA-Public Use
  Company Number: US-GENENTECH-257308

PATIENT
  Sex: Female

DRUGS (4)
  1. HERCEPTIN [Suspect]
     Indication: BREAST CANCER METASTATIC
     Dosage: UNK, UNK
     Dates: start: 20070731
  2. HERCEPTIN [Suspect]
     Dosage: UNK, 1/WEEK
  3. DOCETAXEL [Concomitant]
     Indication: BREAST CANCER
  4. CARBOPLATIN [Concomitant]
     Indication: BREAST CANCER

REACTIONS (1)
  - THROMBOCYTOPENIA [None]
